FAERS Safety Report 9972464 (Version 1)
Quarter: 2014Q1

REPORT INFORMATION
  Report Type: Report from Study
  Country: US (occurrence: US)
  Receive Date: 20140306
  Receipt Date: 20140306
  Transmission Date: 20141002
  Serious: No
  Sender: FDA-Public Use
  Company Number: US-ABBVIE-13P-163-1155495-00

PATIENT
  Age: 60 Year
  Sex: Male
  Weight: 122.58 kg

DRUGS (11)
  1. HUMIRA [Suspect]
     Indication: RHEUMATOID ARTHRITIS
     Route: 058
     Dates: start: 200903, end: 201309
  2. MINOXIDIL [Concomitant]
     Indication: HYPERTENSION
  3. NIFEDIPINE [Concomitant]
     Indication: HYPERTENSION
  4. METOPROLOL [Concomitant]
     Indication: HYPERTENSION
  5. LASIX [Concomitant]
     Indication: HYPERTENSION
  6. SYMBICORT [Concomitant]
     Indication: SARCOIDOSIS
  7. ALBUTEROL [Concomitant]
     Indication: SARCOIDOSIS
  8. CLONAZEPAM [Concomitant]
     Indication: PANIC ATTACK
  9. ASPIRIN [Concomitant]
     Indication: ANTICOAGULANT THERAPY
  10. REPLENISH [Concomitant]
     Indication: VITAMIN SUPPLEMENTATION
     Dosage: OTC
  11. OXYGEN [Concomitant]
     Indication: SARCOIDOSIS

REACTIONS (1)
  - Pain in extremity [Not Recovered/Not Resolved]
